FAERS Safety Report 23940779 (Version 1)
Quarter: 2024Q2

REPORT INFORMATION
  Report Type: Spontaneous
  Country: NI (occurrence: None)
  Receive Date: 20240604
  Receipt Date: 20240604
  Transmission Date: 20240716
  Serious: Yes (Hospitalization)
  Sender: FDA-Public Use
  Company Number: None

PATIENT
  Age: 30 Year
  Sex: Female
  Weight: 75.15 kg

DRUGS (4)
  1. COSMETICS [Suspect]
     Active Substance: COSMETICS
     Indication: Skin discolouration
     Dosage: FREQUENCY : AT BEDTIME?
     Route: 061
     Dates: start: 20240531, end: 20240602
  2. DIPHENHYDRAMINE [Concomitant]
     Active Substance: DIPHENHYDRAMINE
  3. CLINDAMYCIN [Concomitant]
     Active Substance: CLINDAMYCIN
  4. METAMIZOLE [Concomitant]
     Active Substance: METAMIZOLE

REACTIONS (3)
  - Erysipelas [None]
  - Joint swelling [None]
  - Joint stiffness [None]

NARRATIVE: CASE EVENT DATE: 20240106
